FAERS Safety Report 9494427 (Version 1)
Quarter: 2013Q3

REPORT INFORMATION
  Report Type: Spontaneous
  Country: GB (occurrence: GB)
  Receive Date: 20130903
  Receipt Date: 20130903
  Transmission Date: 20140515
  Serious: Yes (Disabling, Other)
  Sender: FDA-Public Use
  Company Number: PHHY2013GB093427

PATIENT
  Age: 26 Year
  Sex: Female
  Weight: 67.58 kg

DRUGS (1)
  1. METRONIDAZOLE [Suspect]
     Indication: VAGINITIS BACTERIAL
     Dosage: 2000MG (5 X 400MG TABLETS)
     Route: 048
     Dates: start: 20130816

REACTIONS (3)
  - Haematemesis [Recovered/Resolved with Sequelae]
  - Vomiting [Recovered/Resolved with Sequelae]
  - Abdominal pain upper [Recovered/Resolved with Sequelae]
